FAERS Safety Report 7314151-5 (Version None)
Quarter: 2011Q1

REPORT INFORMATION
  Report Type: 
  Country: None (occurrence: None)
  Receive Date: 20110225
  Receipt Date: 20100518
  Transmission Date: 20110831
  Serious: No
  Sender: FDA-Public Use
  Company Number: US-MYLANLABS-2010S1008973

PATIENT
  Age: 35 Year
  Sex: Female

DRUGS (2)
  1. CONTRACEPTIVE [Concomitant]
     Indication: CONTRACEPTION
     Route: 048
  2. AMNESTEEM [Suspect]
     Indication: ROSACEA
     Route: 048
     Dates: start: 20100301, end: 20100430

REACTIONS (1)
  - BLOOD TRIGLYCERIDES INCREASED [None]
